FAERS Safety Report 14035755 (Version 3)
Quarter: 2018Q3

REPORT INFORMATION
  Report Type: Spontaneous
  Country: US (occurrence: US)
  Receive Date: 20171003
  Receipt Date: 20180831
  Transmission Date: 20181010
  Serious: Yes (Other)
  Sender: FDA-Public Use
  Company Number: US-LUNDBECK-DKLU2037350

PATIENT
  Sex: Male

DRUGS (3)
  1. SABRIL [Suspect]
     Active Substance: VIGABATRIN
     Indication: INFANTILE SPASMS
     Route: 048
     Dates: start: 20170906
  2. SABRIL [Suspect]
     Active Substance: VIGABATRIN
     Route: 048
     Dates: start: 20170906
  3. SABRIL [Suspect]
     Active Substance: VIGABATRIN
     Indication: TRISOMY 13
     Route: 048
     Dates: start: 20170906

REACTIONS (6)
  - Lennox-Gastaut syndrome [Unknown]
  - Drug withdrawal convulsions [Unknown]
  - Drug ineffective [Unknown]
  - Infantile spitting up [Unknown]
  - Retching [Unknown]
  - Weight decreased [Unknown]
